FAERS Safety Report 15891500 (Version 1)
Quarter: 2019Q1

REPORT INFORMATION
  Report Type: Spontaneous
  Country: US (occurrence: US)
  Receive Date: 20190130
  Receipt Date: 20190130
  Transmission Date: 20190417
  Serious: No
  Sender: FDA-Public Use
  Company Number: US-EISAI MEDICAL RESEARCH-EC-2019-050233

PATIENT
  Age: 76 Year
  Sex: Female

DRUGS (3)
  1. DONEPEZIL. [Suspect]
     Active Substance: DONEPEZIL
     Indication: AMNESIA
     Route: 048
     Dates: end: 201812
  2. LAMOTRIGINE. [Suspect]
     Active Substance: LAMOTRIGINE
     Indication: PRODUCT USE IN UNAPPROVED INDICATION
     Route: 048
     Dates: end: 20181224
  3. NOCTIVA [Suspect]
     Active Substance: DESMOPRESSIN ACETATE
     Indication: PRODUCT USE IN UNAPPROVED INDICATION
     Route: 045
     Dates: start: 2018

REACTIONS (6)
  - Fatigue [Unknown]
  - Incontinence [Recovered/Resolved]
  - Arthritis [Unknown]
  - Anxiety [Recovered/Resolved]
  - Pollakiuria [Recovered/Resolved]
  - Product administration error [Recovered/Resolved]

NARRATIVE: CASE EVENT DATE: 2018
